FAERS Safety Report 9736655 (Version 1)
Quarter: 2013Q4

REPORT INFORMATION
  Report Type: Spontaneous
  Country: US (occurrence: US)
  Receive Date: 20131206
  Receipt Date: 20131206
  Transmission Date: 20140711
  Serious: No
  Sender: FDA-Public Use
  Company Number: US-GILEAD-2009-0022848

PATIENT
  Sex: Male
  Weight: 86.18 kg

DRUGS (15)
  1. LETAIRIS [Suspect]
     Indication: PULMONARY ARTERIAL HYPERTENSION
     Route: 048
  2. LETAIRIS [Suspect]
     Route: 048
     Dates: start: 20080911
  3. OXYGEN [Concomitant]
  4. WARFARIN [Concomitant]
  5. COMBIVENT [Concomitant]
  6. OMEPRAZOLE [Concomitant]
  7. CEFUROXIME AXETIL [Concomitant]
  8. ATENOLOL [Concomitant]
  9. ALTACE [Concomitant]
  10. NORVASC [Concomitant]
  11. AFRIN SALINE NASAL MIST [Concomitant]
  12. SIMVASTATIN [Concomitant]
  13. ACTOS [Concomitant]
  14. ASPIRIN [Concomitant]
  15. VITAMIN B-12 [Concomitant]

REACTIONS (2)
  - Hearing impaired [Unknown]
  - Dyspnoea [Unknown]
